FAERS Safety Report 8540650-4 (Version None)
Quarter: 2012Q3

REPORT INFORMATION
  Report Type: 
  Country: None (occurrence: None)
  Receive Date: 20120726
  Receipt Date: 20120717
  Transmission Date: 20120928
  Serious: Yes (Hospitalization)
  Sender: FDA-Public Use
  Company Number: US-ASTRAZENECA-2012SE31080

PATIENT
  Age: 63 Year
  Sex: Male

DRUGS (17)
  1. FLAGYL [Concomitant]
     Dates: start: 20120430, end: 20120501
  2. VANCOMYCIN [Concomitant]
     Dates: start: 20120430, end: 20120503
  3. CRESTOR [Suspect]
     Route: 048
     Dates: start: 20120420, end: 20120501
  4. CUBICIN [Suspect]
     Dosage: 200ML/HOUR, 580MG
     Route: 041
     Dates: start: 20120430, end: 20120430
  5. LEVLBUTEROL [Concomitant]
     Dates: start: 20120429, end: 20120504
  6. ATROVENT [Concomitant]
     Dates: start: 20120430, end: 20120504
  7. MEROPENEM [Concomitant]
     Dates: start: 20120429, end: 20120504
  8. CASOFUNGIN [Concomitant]
     Dates: start: 20120430, end: 20120503
  9. DIURIL [Concomitant]
     Dates: start: 20120430
  10. CRESTOR [Suspect]
     Route: 048
     Dates: start: 20120420, end: 20120501
  11. ALBUMIN (HUMAN) [Concomitant]
     Dates: start: 20120430, end: 20120504
  12. FERROUS SULFATE AND FOLIC ACID [Concomitant]
     Dates: start: 20120430, end: 20120504
  13. CRESTOR [Suspect]
     Indication: SEPSIS
     Route: 048
     Dates: start: 20120419, end: 20120419
  14. CRESTOR [Suspect]
     Indication: ACUTE RESPIRATORY DISTRESS SYNDROME
     Route: 048
     Dates: start: 20120419, end: 20120419
  15. LACTULOSE [Concomitant]
     Dates: start: 20120429, end: 20120504
  16. CUBICIN [Suspect]
     Dosage: 200ML/HOUR, 580MG
     Route: 041
     Dates: start: 20120502, end: 20120502
  17. LEVOFLOXACIN [Concomitant]
     Dates: start: 20120429, end: 20120501

REACTIONS (4)
  - RHABDOMYOLYSIS [None]
  - ASPARTATE AMINOTRANSFERASE INCREASED [None]
  - DRUG INTERACTION [None]
  - BLOOD CREATINE PHOSPHOKINASE INCREASED [None]
